FAERS Safety Report 17632701 (Version 1)
Quarter: 2020Q2

REPORT INFORMATION
  Report Type: Spontaneous
  Country: US (occurrence: US)
  Receive Date: 20200406
  Receipt Date: 20200406
  Transmission Date: 20200713
  Serious: Yes (Other)
  Sender: FDA-Public Use
  Company Number: US-SHIRE-US202012226

PATIENT
  Age: 26 Year

DRUGS (2)
  1. ADVATE [Suspect]
     Active Substance: ANTIHEMOPHILIC FACTOR, HUMAN RECOMBINANT
     Indication: PRODUCT USED FOR UNKNOWN INDICATION
     Dosage: 2468 UNIT UNKNOWN, FREQUENCY UNKNOWN
     Route: 042
  2. ADVATE [Suspect]
     Active Substance: ANTIHEMOPHILIC FACTOR, HUMAN RECOMBINANT
     Dosage: 4909 UNIT UNKNOWN, FREQUENCY UNKNOWN
     Route: 042

REACTIONS (3)
  - Haemarthrosis [Recovered/Resolved]
  - Fall [Recovered/Resolved]
  - Dental cleaning [Recovered/Resolved]

NARRATIVE: CASE EVENT DATE: 20191218
